FAERS Safety Report 25125437 (Version 1)
Quarter: 2025Q1

REPORT INFORMATION
  Report Type: Spontaneous
  Country: DE (occurrence: DE)
  Receive Date: 20250326
  Receipt Date: 20250326
  Transmission Date: 20250409
  Serious: Yes (Other)
  Sender: MYLAN
  Company Number: DE-DCGMA-25204738

PATIENT
  Age: 55 Year
  Sex: Male
  Weight: 100 kg

DRUGS (11)
  1. DOXEPIN [Suspect]
     Active Substance: DOXEPIN
     Indication: Pain
     Dosage: 100 MILLIGRAM, QD
     Dates: end: 20250205
  2. DOXEPIN [Suspect]
     Active Substance: DOXEPIN
     Indication: Depression
  3. LINEZOLID [Suspect]
     Active Substance: LINEZOLID
     Indication: Pneumonia
     Dosage: 600 MILLIGRAM, BID (1-0-1)
     Dates: start: 20250130, end: 20250205
  4. CITALOPRAM [Suspect]
     Active Substance: CITALOPRAM
     Indication: Depression
     Dosage: 20 MILLIGRAM, QD
     Dates: end: 20250205
  5. FENTANYL [Concomitant]
     Active Substance: FENTANYL
     Indication: Pain
     Dates: start: 20250204, end: 20250204
  6. ERYTHROMYCIN [Concomitant]
     Active Substance: ERYTHROMYCIN
     Dosage: 250 MILLIGRAM, Q6H ( 1-1-1-1)
  7. PIPERACILLIN AND TAZOBACTAM [Concomitant]
     Active Substance: PIPERACILLIN SODIUM\TAZOBACTAM SODIUM
     Indication: Pneumonia
     Dosage: 4.5 GRAM, TID (4.5 G 1-1-1)
  8. NALOXEGOL [Concomitant]
     Active Substance: NALOXEGOL
     Indication: Constipation
     Dosage: 25 MILLIGRAM, QD
  9. PANTOPRAZOLE SODIUM [Concomitant]
     Active Substance: PANTOPRAZOLE SODIUM
     Dosage: 40 MILLIGRAM, QD
  10. LEVOTHYROXINE SODIUM [Concomitant]
     Active Substance: LEVOTHYROXINE SODIUM
     Indication: Hypothyroidism
  11. TINZAPARIN [Concomitant]
     Active Substance: TINZAPARIN
     Indication: Thrombosis prophylaxis
     Dosage: 0.4 MILLILITER, QD

REACTIONS (5)
  - Serotonin syndrome [Unknown]
  - Pyrexia [Unknown]
  - Blood pressure increased [Unknown]
  - Clonus [Unknown]
  - Agitation [Unknown]
